FAERS Safety Report 26105811 (Version 1)
Quarter: 2025Q4

REPORT INFORMATION
  Report Type: Spontaneous
  Country: EU (occurrence: EU)
  Receive Date: 20251201
  Receipt Date: 20251201
  Transmission Date: 20260117
  Serious: Yes (Hospitalization)
  Sender: JOHNSON AND JOHNSON
  Company Number: None

PATIENT
  Age: 60 Year
  Sex: Male
  Weight: 79 kg

DRUGS (1)
  1. CARVYKTI [Suspect]
     Active Substance: CILTACABTAGENE AUTOLEUCEL
     Indication: Plasma cell myeloma
     Dosage: DOSIS ?NICA
     Route: 042
     Dates: start: 20251028, end: 20251028

REACTIONS (3)
  - Immune-mediated cytopenia [Recovered/Resolved]
  - Cytokine release syndrome [Recovered/Resolved]
  - Immune-mediated cytopenia [Recovering/Resolving]

NARRATIVE: CASE EVENT DATE: 20251101
